FAERS Safety Report 24841012 (Version 2)
Quarter: 2025Q1

REPORT INFORMATION
  Report Type: Spontaneous
  Country: PK (occurrence: PK)
  Receive Date: 20250114
  Receipt Date: 20250310
  Transmission Date: 20250409
  Serious: Yes (Other)
  Sender: PFIZER
  Company Number: PK-PFIZER INC-PV202400105036

PATIENT
  Age: 74 Year
  Sex: Male

DRUGS (9)
  1. RUXIENCE [Suspect]
     Active Substance: RITUXIMAB-PVVR
     Indication: Rheumatoid arthritis
     Route: 042
     Dates: start: 20240812
  2. SOFTIN [LORATADINE] [Concomitant]
  3. PANADOL [Concomitant]
     Active Substance: ACETAMINOPHEN
  4. ISONIAZID\RIFAMPIN [Concomitant]
     Active Substance: ISONIAZID\RIFAMPIN
     Dosage: UNK UNK, 1X/DAY
  5. AMYGRA [Concomitant]
     Dosage: UNK, 3X/DAY
  6. VITA 6 [PYRIDOXAL PHOSPHATE] [Concomitant]
     Dosage: UNK UNK, 1X/DAY
  7. DELTACORTRIL [Concomitant]
     Active Substance: PREDNISOLONE
     Dosage: 5 MG, 1X/DAY
  8. FAMOPSIN [Concomitant]
     Dosage: 40 UNK, 1X/DAY
  9. BIOCOBAL [MECOBALAMIN] [Concomitant]
     Dosage: UNK, 2X/WEEK
     Route: 030

REACTIONS (4)
  - Pulmonary tuberculosis [Unknown]
  - Myasthenia gravis [Unknown]
  - Blood pressure diastolic decreased [Unknown]
  - Off label use [Unknown]
